FAERS Safety Report 19827142 (Version 1)
Quarter: 2021Q3

REPORT INFORMATION
  Report Type: Spontaneous
  Country: US (occurrence: US)
  Receive Date: 20210914
  Receipt Date: 20210914
  Transmission Date: 20211014
  Serious: Yes (Hospitalization)
  Sender: FDA-Public Use
  Company Number: None

PATIENT
  Age: 74 Year
  Sex: Female
  Weight: 60.3 kg

DRUGS (1)
  1. DEXILANT [Suspect]
     Active Substance: DEXLANSOPRAZOLE
     Indication: DYSPEPSIA
     Route: 048
     Dates: start: 20210801, end: 20210802

REACTIONS (4)
  - Hypoaesthesia oral [None]
  - Gastric disorder [None]
  - Hypoaesthesia [None]
  - Infection [None]

NARRATIVE: CASE EVENT DATE: 20210801
